FAERS Safety Report 5785970-1 (Version None)
Quarter: 2008Q2

REPORT INFORMATION
  Report Type: 
  Country: None (occurrence: None)
  Receive Date: 20080624
  Receipt Date: 20080613
  Transmission Date: 20081010
  Serious: Yes (Hospitalization)
  Sender: FDA-Public Use
  Company Number: PHBS2008HK04836

PATIENT
  Age: 36 Year
  Sex: Male

DRUGS (6)
  1. IMIPRAMINE [Suspect]
     Indication: DRUG ABUSE
     Dosage: UNK,UNK
     Route: 065
  2. ZOPICLONE [Suspect]
     Dosage: UNK,UNK
     Route: 065
  3. PHENYLPROPANOLAMINE [Suspect]
     Indication: DRUG ABUSE
     Dosage: UNK,UNK
     Route: 065
  4. BENZODIAZEPINES [Suspect]
     Indication: DRUG ABUSE
     Dosage: UNK,UNK
     Route: 065
  5. PHENOTHIAZINE [Suspect]
     Indication: DRUG ABUSE
     Dosage: UNK,UNK
     Route: 065
  6. OPIAT [Suspect]
     Indication: DRUG ABUSE
     Dosage: UNK,UNK
     Route: 065

REACTIONS (11)
  - ABNORMAL BEHAVIOUR [None]
  - CONFUSIONAL STATE [None]
  - DELIRIUM [None]
  - DETOXIFICATION [None]
  - DISORIENTATION [None]
  - DRUG ABUSE [None]
  - DRUG SCREEN POSITIVE [None]
  - ELECTROENCEPHALOGRAM ABNORMAL [None]
  - PARTIAL SEIZURES [None]
  - SPEECH DISORDER [None]
  - STATUS EPILEPTICUS [None]
